FAERS Safety Report 26044056 (Version 1)
Quarter: 2025Q4

REPORT INFORMATION
  Report Type: Spontaneous
  Country: EU (occurrence: EU)
  Receive Date: 20251114
  Receipt Date: 20251114
  Transmission Date: 20260119
  Serious: Yes (Hospitalization, Other)
  Sender: AUROBINDO
  Company Number: EU-AEMPS-1770820

PATIENT
  Age: 61 Year
  Sex: Male

DRUGS (3)
  1. ATORVASTATIN [Interacting]
     Active Substance: ATORVASTATIN
     Indication: Hyperlipidaemia
     Dosage: 80 MILLIGRAM, ONCE A DAY (80MG, CADA 24 HORAS)
     Route: 048
     Dates: start: 20250708, end: 20251021
  2. CYCLOSPORINE [Interacting]
     Active Substance: CYCLOSPORINE
     Indication: Bone marrow failure
     Dosage: 450 MILLIGRAM, ONCE A DAY (150-0-200)
     Route: 048
     Dates: start: 20211013, end: 20250706
  3. CYCLOSPORINE [Interacting]
     Active Substance: CYCLOSPORINE
     Dosage: 150 MILLIGRAM, TWO TIMES A DAY (150MG, CADA 12 HORAS)
     Route: 048
     Dates: start: 20250707, end: 20251020

REACTIONS (2)
  - Hepatic cytolysis [Recovering/Resolving]
  - Hyperbilirubinaemia [Recovering/Resolving]

NARRATIVE: CASE EVENT DATE: 20251020
